FAERS Safety Report 6958867-9 (Version None)
Quarter: 2010Q3

REPORT INFORMATION
  Report Type: 
  Country: None (occurrence: None)
  Receive Date: 20100831
  Receipt Date: 20100806
  Transmission Date: 20110219
  Serious: Yes (Other)
  Sender: FDA-Public Use
  Company Number: US-BAYER-201028888NA

PATIENT
  Age: 41 Year
  Sex: Female

DRUGS (3)
  1. BETASERON [Suspect]
     Indication: RELAPSING-REMITTING MULTIPLE SCLEROSIS
     Dosage: TOTAL DAILY DOSE: 2 MIU
     Route: 058
     Dates: start: 20100714, end: 20100723
  2. CYMBALTA [Concomitant]
     Dosage: DOSE DECREASED
  3. SAVELLA [Concomitant]

REACTIONS (10)
  - ANXIETY [None]
  - CHEST DISCOMFORT [None]
  - CHEST PAIN [None]
  - FLUSHING [None]
  - HOT FLUSH [None]
  - MUSCULOSKELETAL PAIN [None]
  - NERVOUSNESS [None]
  - NIGHT SWEATS [None]
  - PAINFUL RESPIRATION [None]
  - TENSION [None]
